FAERS Safety Report 6170035-X (Version None)
Quarter: 2009Q2

REPORT INFORMATION
  Report Type: 
  Country: None (occurrence: None)
  Receive Date: 20090428
  Receipt Date: 20090415
  Transmission Date: 20091009
  Serious: Yes (Life-Threatening, Hospitalization)
  Sender: FDA-Public Use
  Company Number: PL-GENENTECH-281525

PATIENT
  Sex: Female

DRUGS (15)
  1. RITUXIMAB [Suspect]
     Indication: NON-HODGKIN'S LYMPHOMA
     Dosage: UNK
     Route: 065
     Dates: start: 20090310, end: 20090314
  2. CYCLOPHOSPHAMIDE [Suspect]
     Indication: NON-HODGKIN'S LYMPHOMA
     Dosage: 1470 MG, UNK
     Route: 042
     Dates: start: 20090310
  3. DOXORUBICIN HCL [Suspect]
     Indication: NON-HODGKIN'S LYMPHOMA
     Dosage: 98 MG, UNK
     Route: 062
     Dates: start: 20090310
  4. VINCRISTINE [Suspect]
     Indication: NON-HODGKIN'S LYMPHOMA
     Dosage: 4 MG, UNK
     Route: 042
     Dates: start: 20090310
  5. PREDNISONE [Concomitant]
     Indication: DRUG USE FOR UNKNOWN INDICATION
     Dosage: UNK
     Dates: start: 20090310, end: 20090314
  6. FRAXIPARINA [Concomitant]
     Indication: DRUG USE FOR UNKNOWN INDICATION
     Dosage: UNK
     Dates: start: 20090224
  7. INSULIN MIXTARD 30 HM [Concomitant]
     Indication: DRUG USE FOR UNKNOWN INDICATION
     Dosage: UNK
     Dates: start: 20090203
  8. MILURIT [Concomitant]
     Indication: DRUG USE FOR UNKNOWN INDICATION
     Dosage: UNK
     Dates: start: 20090310, end: 20090322
  9. DETRALEX [Concomitant]
     Indication: DRUG USE FOR UNKNOWN INDICATION
     Dosage: UNK
     Dates: start: 20090305
  10. KETONAL [Concomitant]
     Indication: DRUG USE FOR UNKNOWN INDICATION
     Dosage: UNK
     Dates: start: 20090304, end: 20090328
  11. POLPRAZOL [Concomitant]
     Indication: DRUG USE FOR UNKNOWN INDICATION
     Dosage: UNK
     Dates: start: 20090313
  12. ALGINIC ACID [Concomitant]
     Indication: DRUG USE FOR UNKNOWN INDICATION
     Dosage: UNK
     Dates: start: 20090313
  13. CONCOMITANT DRUG [Concomitant]
     Indication: DRUG USE FOR UNKNOWN INDICATION
  14. CONCOMITANT DRUG [Concomitant]
  15. CONCOMITANT DRUG [Concomitant]

REACTIONS (2)
  - FEBRILE NEUTROPENIA [None]
  - SKIN NECROSIS [None]
